FAERS Safety Report 23362488 (Version 1)
Quarter: 2024Q1

REPORT INFORMATION
  Report Type: Spontaneous
  Country: US (occurrence: None)
  Receive Date: 20240102
  Receipt Date: 20240102
  Transmission Date: 20240409
  Serious: Yes (Death)
  Sender: FDA-Public Use
  Company Number: None

PATIENT
  Age: 67 Year
  Sex: Female

DRUGS (17)
  1. REPATHA [Suspect]
     Active Substance: EVOLOCUMAB
     Indication: Product used for unknown indication
     Dosage: 140MG/ML  SUBCUTANEOUS??INJECT 1 ML SQ EVERY 2 WEEKS IN THE ABDOMEN, THIGH, OR OUTER AREA OF UPPER A
     Route: 058
     Dates: start: 20221220
  2. BRILINTA [Concomitant]
     Active Substance: TICAGRELOR
  3. ROPINIROLE [Concomitant]
  4. ALBUTEROL [Concomitant]
     Active Substance: ALBUTEROL
  5. ALBUTEROL HFA INH (200 PUFFS) [Concomitant]
  6. DILTIAZEM 60MG [Concomitant]
  7. DULOXETINE DR 20MG CAPSULES [Concomitant]
  8. GABAPENTIN 300MG CAPSULES [Concomitant]
  9. LORAZEPAM 0.5MG TABLETS [Concomitant]
  10. METOPROLOL TARTRATE 25MG [Concomitant]
  11. OXYBUTYNIN 5MG [Concomitant]
  12. PROTONIX 40MG TABLETS [Concomitant]
  13. RANEXA 500MG TABLETS [Concomitant]
  14. REPATHA SRCLK 140MG/ML PF AUTO INJ [Concomitant]
  15. SPIRIVA RESPIMAT 1.25MCG [Concomitant]
  16. VARENICLINE (APO) 0.5MG TABLETS [Concomitant]
  17. ZETIA 10MG TABLETS [Concomitant]

REACTIONS (1)
  - Death [None]

NARRATIVE: CASE EVENT DATE: 20231213
